FAERS Safety Report 8583379-9 (Version None)
Quarter: 2012Q3

REPORT INFORMATION
  Report Type: 
  Country: None (occurrence: None)
  Receive Date: 20120809
  Receipt Date: 20120726
  Transmission Date: 20120928
  Serious: Yes (Other)
  Sender: FDA-Public Use
  Company Number: US-WATSON-2012-13211

PATIENT
  Age: 13 Month
  Sex: Male
  Weight: 10 kg

DRUGS (1)
  1. DIPHENHYDRAMINE HYDROCHLORIDE [Suspect]
     Indication: OVERDOSE
     Dosage: 25 MG, SINGLE
     Route: 048

REACTIONS (5)
  - ACCIDENTAL OVERDOSE [None]
  - TACHYCARDIA [None]
  - STATUS EPILEPTICUS [None]
  - CONVULSION [None]
  - CONDITION AGGRAVATED [None]
